FAERS Safety Report 22203568 (Version 1)
Quarter: 2023Q2

REPORT INFORMATION
  Report Type: Spontaneous
  Country: NO (occurrence: NO)
  Receive Date: 20230412
  Receipt Date: 20230412
  Transmission Date: 20230721
  Serious: Yes (Death, Hospitalization)
  Sender: FDA-Public Use
  Company Number: NO-ABBVIE-4725827

PATIENT
  Age: 78 Year
  Sex: Female

DRUGS (2)
  1. VENETOCLAX [Suspect]
     Active Substance: VENETOCLAX
     Indication: Product used for unknown indication
     Route: 048
     Dates: start: 20220322, end: 20220504
  2. VENETOCLAX [Suspect]
     Active Substance: VENETOCLAX
     Indication: Product used for unknown indication
     Dosage: 20 MG X 1. RAMP UP ACCORDING TO RECOMMENDATION.
     Route: 048
     Dates: start: 20220307

REACTIONS (3)
  - Death [Fatal]
  - Cardiac failure [Unknown]
  - COVID-19 [Unknown]
